FAERS Safety Report 5731409-1 (Version None)
Quarter: 2008Q2

REPORT INFORMATION
  Report Type: 
  Country: None (occurrence: None)
  Receive Date: 20080508
  Receipt Date: 20080428
  Transmission Date: 20081010
  Serious: Yes (Hospitalization, Other)
  Sender: FDA-Public Use
  Company Number: PHBS2008GB04379

PATIENT
  Age: 31 Year
  Sex: Female

DRUGS (11)
  1. HYDRALAZINE HCL [Suspect]
     Indication: HYPERTENSION
  2. SODIUM CITRATE [Concomitant]
  3. HYPERBARIC [Concomitant]
     Dosage: 0.5 %, UNK
     Route: 037
  4. BUPIVACAINE [Concomitant]
     Dosage: 1.5 ML, UNK
     Route: 037
  5. FENTANYL [Concomitant]
     Dosage: 20 UG, UNK
     Route: 037
  6. SODIUM LACTATE [Concomitant]
     Dosage: 75 ML, UNK
  7. SODIUM LACTATE [Concomitant]
     Dosage: 100 ML, UNK
  8. SYNTOCINON [Concomitant]
     Dosage: 2 IU, UNK
  9. AMOXICILLIN [Concomitant]
     Dosage: 1 G, UNK
  10. CLAVULANATE POTASSIUM [Concomitant]
     Dosage: 200 MG, UNK
  11. FLUID/ELECTROLYTE REPLACEMENT THERAPY [Concomitant]
     Dosage: 800 ML, UNK
     Route: 042

REACTIONS (13)
  - ALANINE AMINOTRANSFERASE INCREASED [None]
  - ASPARTATE AMINOTRANSFERASE INCREASED [None]
  - BLOOD ALKALINE PHOSPHATASE INCREASED [None]
  - BLOOD LACTATE DEHYDROGENASE INCREASED [None]
  - CAESAREAN SECTION [None]
  - DRUG EXPOSURE DURING PREGNANCY [None]
  - EPIDURAL ANAESTHESIA [None]
  - FOETAL MONITORING [None]
  - HEADACHE [None]
  - NORMAL NEWBORN [None]
  - PHOTOPHOBIA [None]
  - PULMONARY ARTERIAL PRESSURE [None]
  - SENSORY LOSS [None]
